FAERS Safety Report 8261322-X (Version None)
Quarter: 2012Q2

REPORT INFORMATION
  Report Type: 
  Country: None (occurrence: None)
  Receive Date: 20120405
  Receipt Date: 20120329
  Transmission Date: 20120825
  Serious: Yes (Hospitalization)
  Sender: FDA-Public Use
  Company Number: JP-BAYER-2011-112190

PATIENT
  Age: 66 Year
  Sex: Male
  Weight: 42 kg

DRUGS (4)
  1. PLAVIX [Concomitant]
     Dosage: UNK
     Route: 048
  2. HIRUDOID [Concomitant]
     Dosage: UNK
     Route: 061
     Dates: start: 20111102, end: 20111121
  3. MONILAC [Concomitant]
     Dosage: DAILY DOSE 20 ML
     Route: 048
     Dates: start: 20110409
  4. NEXAVAR [Suspect]
     Indication: HEPATIC NEOPLASM MALIGNANT
     Dosage: 200 MG, BID
     Route: 048
     Dates: start: 20111102, end: 20111121

REACTIONS (1)
  - DYSPNOEA [None]
